FAERS Safety Report 15482731 (Version 1)
Quarter: 2018Q4

REPORT INFORMATION
  Report Type: Spontaneous
  Country: CZ (occurrence: CZ)
  Receive Date: 20181010
  Receipt Date: 20181010
  Transmission Date: 20190205
  Serious: Yes (Death, Hospitalization, Other)
  Sender: FDA-Public Use
  Company Number: CZ-AMGEN-CZESP2018138565

PATIENT
  Age: 24 Year
  Sex: Female

DRUGS (5)
  1. XGEVA [Suspect]
     Active Substance: DENOSUMAB
     Indication: METASTASES TO BONE
     Dosage: UNK
     Route: 065
     Dates: start: 20140723, end: 2014
  2. CISPLATIN. [Suspect]
     Active Substance: CISPLATIN
     Indication: LUNG ADENOCARCINOMA
     Dosage: UNK
     Route: 065
     Dates: start: 20140720
  3. NINTEDANIB [Concomitant]
     Active Substance: NINTEDANIB
     Indication: LUNG ADENOCARCINOMA
     Dosage: 400 MG, Q3WK, ADMINISTERED ON DAYS 2-22 OF THE CYCLE
     Dates: start: 20140821
  4. DOCETAXEL. [Suspect]
     Active Substance: DOCETAXEL
     Indication: LUNG ADENOCARCINOMA
     Dosage: 400 MG, Q3WK, DAYS 2-22 OF THE CYCLE IN COMBINATION WITH NINTEDANIB
     Route: 065
     Dates: start: 20140821
  5. FOLIC ACID. [Concomitant]
     Active Substance: FOLIC ACID
     Indication: PRODUCT USE IN UNAPPROVED INDICATION
     Dosage: UNK
     Dates: start: 20140720

REACTIONS (9)
  - Intestinal haemorrhage [Unknown]
  - Duodenal ulcer haemorrhage [Unknown]
  - Diarrhoea [Recovered/Resolved]
  - Hypocalcaemia [Not Recovered/Not Resolved]
  - Gastrointestinal toxicity [Unknown]
  - Oral candidiasis [Unknown]
  - Anaemia [Unknown]
  - Neoplasm progression [Fatal]
  - Hepatotoxicity [Unknown]

NARRATIVE: CASE EVENT DATE: 2014
